FAERS Safety Report 4931698-7 (Version None)
Quarter: 2006Q1

REPORT INFORMATION
  Report Type: 
  Country: None (occurrence: None)
  Receive Date: 20060303
  Receipt Date: 20060125
  Transmission Date: 20060701
  Serious: No
  Sender: FDA-Public Use
  Company Number: US-BRISTOL-MYERS SQUIBB COMPANY-13259155

PATIENT
  Age: 46 Year
  Sex: Female

DRUGS (5)
  1. ERBITUX [Suspect]
     Indication: COLON CANCER METASTATIC
     Dates: start: 20040407, end: 20040407
  2. IRINOTECAN HCL [Concomitant]
     Indication: COLORECTAL CANCER METASTATIC
     Dates: start: 20040407, end: 20040407
  3. ZOFRAN [Concomitant]
     Dosage: 8 MG TWICE PER DAY AS NEEDED
     Route: 048
  4. MARINOL [Concomitant]
  5. FERROUS SULFATE TAB [Concomitant]
     Route: 048

REACTIONS (7)
  - DIARRHOEA [None]
  - DRY SKIN [None]
  - HAEMATOCRIT DECREASED [None]
  - HAEMOGLOBIN DECREASED [None]
  - HYPOTRICHOSIS [None]
  - RASH [None]
  - RASH PUSTULAR [None]
